FAERS Safety Report 4480955-X (Version None)
Quarter: 2004Q3

REPORT INFORMATION
  Report Type: 
  Country: None (occurrence: None)
  Receive Date: 20040923
  Receipt Date: 20040526
  Transmission Date: 20050211
  Serious: No
  Sender: FDA-Public Use
  Company Number: USA040568588

PATIENT
  Sex: Female
  Weight: 62 kg

DRUGS (5)
  1. FORTEO [Suspect]
     Indication: OSTEOPOROSIS
     Dosage: 20 UG/1 DAY
     Dates: start: 20040101
  2. RALOXIFENE HCL [Suspect]
     Indication: OSTEOPOROSIS
     Dosage: 60 MG/1 DAY
     Dates: start: 20030601
  3. BENTYL [Concomitant]
  4. MULTI-VITAMIN [Concomitant]
  5. CALCIUM [Concomitant]

REACTIONS (7)
  - EPISTAXIS [None]
  - ERYTHEMA [None]
  - HOT FLUSH [None]
  - NASAL DISCOMFORT [None]
  - PAIN [None]
  - RHINORRHOEA [None]
  - SCAB [None]
